FAERS Safety Report 16721721 (Version 1)
Quarter: 2019Q3

REPORT INFORMATION
  Report Type: Spontaneous
  Country: FR (occurrence: FR)
  Receive Date: 20190820
  Receipt Date: 20190820
  Transmission Date: 20191005
  Serious: Yes (Hospitalization)
  Sender: FDA-Public Use
  Company Number: FR-TEVA-2019-FR-1094311

PATIENT
  Age: 87 Year
  Sex: Female
  Weight: 66 kg

DRUGS (9)
  1. FUROSEMIDE. [Concomitant]
     Active Substance: FUROSEMIDE
     Route: 048
  2. PANTOPRAZOLE [Concomitant]
     Active Substance: PANTOPRAZOLE
     Route: 048
  3. HUMALOG 100 U/ML, SOLUTION INJECTABLE EN CARTOUCHE DE 1,5 ML [Concomitant]
     Route: 058
  4. LOSARTAN ARROW 50 MG, COMPRIM? PELLICUL? S?CABLE [Concomitant]
     Active Substance: LOSARTAN
  5. REPAGLINIDE ARROW [Concomitant]
     Active Substance: REPAGLINIDE
     Route: 048
  6. VENLAFAXINE ARROW LP 37,5 MG, GELULE A LIBERATION PROLONGEE [Concomitant]
     Route: 048
  7. FURADANTINE 50 MG, GELULE [Suspect]
     Active Substance: NITROFURANTOIN
     Indication: CYSTITIS
     Dosage: 300 MILLIGRAM
     Route: 048
     Dates: start: 20190424, end: 20190502
  8. MIANSERINE (CHLORHYDRATE DE) [Concomitant]
     Active Substance: MIANSERIN HYDROCHLORIDE
     Route: 048
  9. PREVISCAN 20 MG, COMPRIME SECABLE [Concomitant]
     Active Substance: FLUINDIONE
     Route: 048

REACTIONS (2)
  - Cholestasis [Recovering/Resolving]
  - Acute kidney injury [Recovering/Resolving]

NARRATIVE: CASE EVENT DATE: 201905
